FAERS Safety Report 19355982 (Version 6)
Quarter: 2021Q3

REPORT INFORMATION
  Report Type: Report from Study
  Country: IL (occurrence: IL)
  Receive Date: 20210602
  Receipt Date: 20210721
  Transmission Date: 20211014
  Serious: Yes (Hospitalization)
  Sender: FDA-Public Use
  Company Number: IL-ROCHE-2837575

PATIENT
  Age: 81 Year
  Sex: Female
  Weight: 61.9 kg

DRUGS (26)
  1. LAXADIN [Concomitant]
     Active Substance: BISACODYL
     Route: 048
     Dates: start: 20210527, end: 20210527
  2. NORMALAX (ISRAEL) [Concomitant]
     Route: 048
     Dates: start: 20210527, end: 20210530
  3. POLATUZUMAB VEDOTIN. [Suspect]
     Active Substance: POLATUZUMAB VEDOTIN
     Indication: DIFFUSE LARGE B-CELL LYMPHOMA
     Dosage: DATE OF MOST RECENT DOSE OF POLATUZUMAB VEDOTIN OF 112 MG PRIOR TO SAE ONSET: 23/MAY/2021
     Route: 042
     Dates: start: 20210523
  4. XAMIOL [Concomitant]
     Active Substance: BETAMETHASONE DIPROPIONATE\CALCIPOTRIENE HYDRATE
     Route: 061
     Dates: start: 20140119
  5. PREDNISONE. [Concomitant]
     Active Substance: PREDNISONE
     Route: 048
     Dates: start: 20210510, end: 20210523
  6. EUTHYROX [Concomitant]
     Active Substance: LEVOTHYROXINE SODIUM
     Route: 048
     Dates: start: 20120322
  7. ZOFRAN [Concomitant]
     Active Substance: ONDANSETRON HYDROCHLORIDE
     Route: 048
     Dates: start: 20210525
  8. PARACETAMOL [Concomitant]
     Active Substance: ACETAMINOPHEN
     Route: 048
     Dates: start: 20210526, end: 20210526
  9. DIPHENHYDRAMINE. [Concomitant]
     Active Substance: DIPHENHYDRAMINE
     Route: 042
     Dates: start: 20210523, end: 20210523
  10. ACYCLOVIR. [Concomitant]
     Active Substance: ACYCLOVIR
     Route: 048
     Dates: start: 20210510
  11. AVILAC [Concomitant]
     Route: 048
     Dates: start: 20210525, end: 20210530
  12. SETRON (ISRAEL) [Concomitant]
     Route: 042
     Dates: start: 20210523, end: 20210523
  13. DEXAMETHASONE. [Concomitant]
     Active Substance: DEXAMETHASONE
     Route: 048
     Dates: start: 20210526, end: 20210526
  14. LORIVAN [Concomitant]
     Active Substance: LORAZEPAM
     Route: 048
     Dates: start: 20210528
  15. DISEPTYL FORTE [Concomitant]
     Route: 048
     Dates: start: 20210528
  16. PARACETAMOL [Concomitant]
     Active Substance: ACETAMINOPHEN
     Route: 048
     Dates: start: 20210523, end: 20210523
  17. CALCIUM [Concomitant]
     Active Substance: CALCIUM
     Dosage: 600
     Route: 048
     Dates: start: 20170102
  18. VIT D [COLECALCIFEROL] [Concomitant]
     Route: 048
     Dates: start: 20170102
  19. MEROPENEM. [Concomitant]
     Active Substance: MEROPENEM
     Route: 042
     Dates: start: 20210528, end: 20210601
  20. MOSUNETUZUMAB. [Suspect]
     Active Substance: MOSUNETUZUMAB
     Indication: DIFFUSE LARGE B-CELL LYMPHOMA
     Dosage: DATE OF MOST RECENT DOSE OF MOSUNETUZUMAB PRIOR TO SAE ONSET: 23/MAY/2021 AT 3:40 PM
     Route: 058
     Dates: start: 20210523
  21. ALLORIL [Concomitant]
     Active Substance: ALLOPURINOL
     Route: 048
     Dates: start: 20210510
  22. DEXAMETHASONE. [Concomitant]
     Active Substance: DEXAMETHASONE
     Route: 042
     Dates: start: 20210523, end: 20210523
  23. DIPYRONE [Concomitant]
     Active Substance: DIPYRONE
     Route: 048
     Dates: start: 20210526, end: 20210526
  24. DIPYRONE [Concomitant]
     Active Substance: DIPYRONE
     Route: 048
     Dates: start: 20210530, end: 20210530
  25. LIPITOR [Concomitant]
     Active Substance: ATORVASTATIN CALCIUM
     Route: 048
     Dates: start: 20191205
  26. ZODORM [Concomitant]
     Route: 048
     Dates: start: 20090809

REACTIONS (1)
  - Cytokine release syndrome [Recovered/Resolved]

NARRATIVE: CASE EVENT DATE: 20210524
